FAERS Safety Report 10186053 (Version 1)
Quarter: 2014Q2

REPORT INFORMATION
  Report Type: Spontaneous
  Country: US (occurrence: None)
  Receive Date: 20140520
  Receipt Date: 20140520
  Transmission Date: 20141212
  Serious: Yes (Other)
  Sender: FDA-Public Use
  Company Number: None

PATIENT
  Age: 46 Year
  Sex: Female
  Weight: 81.8 kg

DRUGS (1)
  1. HUMIRA [Suspect]
     Dosage: 40MG Q2WEEKS SUBQ
     Dates: start: 20140331, end: 20140516

REACTIONS (1)
  - Unevaluable event [None]
